FAERS Safety Report 4727600-3 (Version None)
Quarter: 2005Q3

REPORT INFORMATION
  Report Type: 
  Country: None (occurrence: None)
  Receive Date: 20050727
  Receipt Date: 20050727
  Transmission Date: 20060218
  Serious: Yes (Hospitalization)
  Sender: FDA-Public Use
  Company Number: None

PATIENT
  Age: 64 Year
  Sex: Male
  Weight: 63.5036 kg

DRUGS (1)
  1. TEGRETOL [Suspect]
     Indication: TRIGEMINAL NEURALGIA
     Dosage: 300 MG/ TWICE A DAY ORAL
     Route: 048
     Dates: start: 20050301, end: 20050403

REACTIONS (18)
  - ARTHRITIS [None]
  - DEPRESSION [None]
  - ECONOMIC PROBLEM [None]
  - GENERALISED ERYTHEMA [None]
  - HEPATIC ENZYME INCREASED [None]
  - HYPERSENSITIVITY [None]
  - INFLAMMATION [None]
  - LABORATORY TEST ABNORMAL [None]
  - LOSS OF EMPLOYMENT [None]
  - MALAISE [None]
  - MULTIPLE MYELOMA [None]
  - PHOTOPHOBIA [None]
  - PSORIASIS [None]
  - RASH GENERALISED [None]
  - SKIN DISORDER [None]
  - SKIN EXFOLIATION [None]
  - TEMPERATURE INTOLERANCE [None]
  - TONGUE ERUPTION [None]
